FAERS Safety Report 6429775-7 (Version None)
Quarter: 2009Q4

REPORT INFORMATION
  Report Type: 
  Country: None (occurrence: None)
  Receive Date: 20091103
  Receipt Date: 20091020
  Transmission Date: 20100525
  Serious: Yes (Other)
  Sender: FDA-Public Use
  Company Number: 8046509

PATIENT
  Age: 32 Year
  Sex: Female

DRUGS (5)
  1. KEPPRA [Suspect]
     Indication: EPILEPSY
     Dosage: 1 G /D PO
     Route: 048
     Dates: start: 20040101
  2. DEPAKENE [Concomitant]
  3. LAMICTAL [Concomitant]
  4. SPECIAFOLDINE [Concomitant]
  5. ROVAMYCINE [Concomitant]

REACTIONS (3)
  - CAESAREAN SECTION [None]
  - DRUG EXPOSURE DURING PREGNANCY [None]
  - PREGNANCY [None]
